FAERS Safety Report 16967597 (Version 1)
Quarter: 2019Q4

REPORT INFORMATION
  Report Type: Spontaneous
  Country: US (occurrence: US)
  Receive Date: 20190910
  Receipt Date: 20190910
  Transmission Date: 20200122
  Serious: Yes (Other)
  Sender: FDA-Public Use
  Company Number: None

PATIENT
  Age: 53 Year
  Sex: Female
  Weight: 61.69 kg

DRUGS (6)
  1. PREGABALIN. [Suspect]
     Active Substance: PREGABALIN
     Indication: COMPLEX REGIONAL PAIN SYNDROME
     Dosage: ?          QUANTITY:200 MG MILLIGRAM(S);OTHER FREQUENCY:1-2 CUP EVERY 8 HR;?
     Route: 048
     Dates: start: 20190812
  2. LYRICA [Concomitant]
     Active Substance: PREGABALIN
  3. ESTRADIAL [Concomitant]
  4. MULTIVIT [Concomitant]
     Active Substance: VITAMINS
  5. IBUPROFEN. [Concomitant]
     Active Substance: IBUPROFEN
  6. NORTRIPYLINE [Concomitant]

REACTIONS (6)
  - Paraesthesia [None]
  - Unevaluable event [None]
  - Feeling cold [None]
  - Gait disturbance [None]
  - Product substitution issue [None]
  - Pain [None]

NARRATIVE: CASE EVENT DATE: 20190813
